FAERS Safety Report 8386716-3 (Version None)
Quarter: 2012Q2

REPORT INFORMATION
  Report Type: 
  Country: None (occurrence: None)
  Receive Date: 20120525
  Receipt Date: 20120514
  Transmission Date: 20120825
  Serious: Yes (Hospitalization)
  Sender: FDA-Public Use
  Company Number: US-MYLANLABS-2012S1010178

PATIENT
  Age: 56 Year
  Sex: Male

DRUGS (3)
  1. METHADONE HCL [Concomitant]
     Route: 065
  2. LAMOTRGINE [Suspect]
     Indication: CONVULSION
     Route: 048
  3. CLONAZEPAM [Concomitant]
     Indication: CONVULSION
     Route: 048

REACTIONS (7)
  - CONVULSION [None]
  - INTENTIONAL DRUG MISUSE [None]
  - TOXICITY TO VARIOUS AGENTS [None]
  - RHABDOMYOLYSIS [None]
  - GRAND MAL CONVULSION [None]
  - TREATMENT NONCOMPLIANCE [None]
  - POSTICTAL STATE [None]
